FAERS Safety Report 4947881-0 (Version None)
Quarter: 2006Q1

REPORT INFORMATION
  Report Type: 
  Country: None (occurrence: None)
  Receive Date: 20060317
  Receipt Date: 20060317
  Transmission Date: 20060701
  Serious: Yes (Life-Threatening)
  Sender: FDA-Public Use
  Company Number: None

PATIENT
  Age: 49 Year
  Sex: Female

DRUGS (28)
  1. BUPIVACAINE [Suspect]
     Indication: KNEE ARTHROPLASTY
     Dosage: 150 ML    10 ML/HR    IV DRIP
     Route: 041
     Dates: start: 20040611, end: 20040611
  2. BUPIVACAINE [Suspect]
     Indication: POSTOPERATIVE CARE
     Dosage: 150 ML    10 ML/HR    IV DRIP
     Route: 041
     Dates: start: 20040611, end: 20040611
  3. CEFAZOLIN [Concomitant]
  4. MIDAZOLAM HCL [Concomitant]
  5. HEPARIN LOCK-FLUSH [Concomitant]
  6. MEPERIDINE [Concomitant]
  7. FENTANYL [Concomitant]
  8. ONDANSETRON [Concomitant]
  9. DROPERIDOL [Concomitant]
  10. POTASSIUM CHLORIDE IN D5W [Concomitant]
  11. PERCOCET [Concomitant]
  12. TYLENOL W/ CODEINE NO. 3 [Concomitant]
  13. APAP TAB [Concomitant]
  14. DIPHENHYDRAMINE [Concomitant]
  15. WARFARIN SODIUM [Concomitant]
  16. KETOROLAC [Concomitant]
  17. MOM [Concomitant]
  18. BISACODYL [Concomitant]
  19. DOCUSATE [Concomitant]
  20. HYDROMORPHONE HCL [Concomitant]
  21. TRIAZOLAM [Concomitant]
  22. ESTERIFIED ESTROGEN [Concomitant]
  23. FERROUS SULFATE TAB [Concomitant]
  24. PROPOFOL [Concomitant]
  25. SEVOFLURANE [Concomitant]
  26. ROCURONIUM [Concomitant]
  27. PHENERGAN HCL [Concomitant]
  28. NYSTATIN [Concomitant]

REACTIONS (10)
  - BUNDLE BRANCH BLOCK RIGHT [None]
  - CRYING [None]
  - DISORIENTATION [None]
  - DRUG TOXICITY [None]
  - DYSARTHRIA [None]
  - ELECTROCARDIOGRAM PR PROLONGATION [None]
  - EMOTIONAL DISORDER [None]
  - HYPERTENSION [None]
  - INJECTION SITE PRURITUS [None]
  - MENTAL STATUS CHANGES [None]
